FAERS Safety Report 9342202 (Version 1)
Quarter: 2013Q2

REPORT INFORMATION
  Report Type: Spontaneous
  Country: US (occurrence: US)
  Receive Date: 20130611
  Receipt Date: 20130611
  Transmission Date: 20140414
  Serious: No
  Sender: FDA-Public Use
  Company Number: US-BIOGENIDEC-2013BI049550

PATIENT
  Sex: Female

DRUGS (2)
  1. AVONEX [Suspect]
     Indication: MULTIPLE SCLEROSIS
     Route: 030
     Dates: start: 20031114, end: 20031121
  2. COPAXONE [Concomitant]

REACTIONS (7)
  - Blood pressure increased [Unknown]
  - Skin lesion [Unknown]
  - Bacterial infection [Unknown]
  - Tooth fracture [Unknown]
  - Gait disturbance [Unknown]
  - Hypoaesthesia [Unknown]
  - Arthralgia [Unknown]
